FAERS Safety Report 10550939 (Version 1)
Quarter: 2014Q4

REPORT INFORMATION
  Report Type: Spontaneous
  Country: US (occurrence: None)
  Receive Date: 20141020
  Receipt Date: 20141020
  Transmission Date: 20150529
  Serious: No
  Sender: FDA-Public Use
  Company Number: AEGR000617

PATIENT
  Age: 66 Year
  Sex: Female
  Weight: 61.7 kg

DRUGS (5)
  1. VIT D (ERGOCALCIFEROL) CAPSULE [Concomitant]
  2. ESTRADIOL. [Concomitant]
     Active Substance: ESTRADIOL
  3. OMEGA 3 (FISH OIL) [Concomitant]
     Active Substance: OMEGA-3 FATTY ACIDS
  4. VIT E (TOCOPHEROL) [Concomitant]
  5. JUXTAPID [Suspect]
     Active Substance: LOMITAPIDE MESYLATE
     Indication: TYPE IIA HYPERLIPIDAEMIA
     Route: 048
     Dates: start: 20140611

REACTIONS (1)
  - Weight decreased [None]

NARRATIVE: CASE EVENT DATE: 201406
